FAERS Safety Report 21232167 (Version 1)
Quarter: 2022Q3

REPORT INFORMATION
  Report Type: Spontaneous
  Country: US (occurrence: None)
  Receive Date: 20220818
  Receipt Date: 20220818
  Transmission Date: 20221027
  Serious: Yes (Other)
  Sender: FDA-Public Use
  Company Number: None

PATIENT
  Age: 46 Year
  Sex: Female
  Weight: 87.3 kg

DRUGS (8)
  1. MAGNESIUM CITRATE ORAL SOLUTION CHERRY FLAVOR [Suspect]
     Active Substance: MAGNESIUM CITRATE
     Indication: Colonoscopy
     Route: 048
     Dates: start: 20220705, end: 20220705
  2. HIZENTRA [Concomitant]
     Active Substance: HUMAN IMMUNOGLOBULIN G
  3. METHOTREXATE [Concomitant]
     Active Substance: METHOTREXATE
  4. PLAQUENIL [Concomitant]
     Active Substance: HYDROXYCHLOROQUINE SULFATE
  5. FOLIC ACID [Concomitant]
     Active Substance: FOLIC ACID
  6. MESTINON [Concomitant]
     Active Substance: PYRIDOSTIGMINE BROMIDE
  7. ADDERALL [Concomitant]
     Active Substance: AMPHETAMINE ASPARTATE\AMPHETAMINE SULFATE\DEXTROAMPHETAMINE SACCHARATE\DEXTROAMPHETAMINE SULFATE
  8. SAXENDA [Concomitant]
     Active Substance: LIRAGLUTIDE

REACTIONS (9)
  - Abdominal pain upper [None]
  - Nausea [None]
  - Diarrhoea [None]
  - Decreased appetite [None]
  - Pyrexia [None]
  - Chills [None]
  - Neck pain [None]
  - Headache [None]
  - Malaise [None]

NARRATIVE: CASE EVENT DATE: 20220706
